FAERS Safety Report 6125016-9 (Version None)
Quarter: 2009Q1

REPORT INFORMATION
  Report Type: 
  Country: None (occurrence: None)
  Receive Date: 20090319
  Receipt Date: 20090305
  Transmission Date: 20090719
  Serious: Yes (Disabling)
  Sender: FDA-Public Use
  Company Number: FI-PFIZER INC-2009179072

PATIENT

DRUGS (6)
  1. TOLTERODINE TARTRATE [Suspect]
     Indication: URINARY INCONTINENCE
     Dosage: 4 MG, 1X/DAY
     Route: 048
     Dates: start: 20090223, end: 20090304
  2. THYROXIN [Concomitant]
     Dosage: UNK
     Route: 048
  3. METFOREM [Concomitant]
     Dosage: UNK
     Route: 048
  4. PRIMASPAN [Concomitant]
     Dosage: UNK
     Route: 048
  5. SIMVASTATIN [Concomitant]
     Dosage: UNK
     Route: 048
  6. KLORPROMAN [Concomitant]
     Dosage: UNK
     Route: 048

REACTIONS (5)
  - DIZZINESS [None]
  - DYSSTASIA [None]
  - FEELING DRUNK [None]
  - HEADACHE [None]
  - SOMNOLENCE [None]
